FAERS Safety Report 6176592-1 (Version None)
Quarter: 2009Q2

REPORT INFORMATION
  Report Type: 
  Country: None (occurrence: None)
  Receive Date: 20090501
  Receipt Date: 20090424
  Transmission Date: 20091009
  Serious: Yes (Other)
  Sender: FDA-Public Use
  Company Number: US-ELI_LILLY_AND_COMPANY-US200904006133

PATIENT
  Sex: Female
  Weight: 116.1 kg

DRUGS (3)
  1. BYETTA [Suspect]
     Indication: TYPE 2 DIABETES MELLITUS
     Dosage: 5 UG, 2/D
     Route: 058
     Dates: start: 20090201, end: 20090201
  2. BYETTA [Suspect]
     Dosage: 10 UG, 2/D
     Route: 058
     Dates: start: 20090201
  3. CORTICOSTEROIDS [Concomitant]
     Indication: PNEUMONIA
     Dosage: UNK, UNKNOWN
     Dates: start: 20090201

REACTIONS (5)
  - BLINDNESS [None]
  - DIPLOPIA [None]
  - EYE PAIN [None]
  - OCULAR HYPERAEMIA [None]
  - VISION BLURRED [None]
